FAERS Safety Report 14943206 (Version 2)
Quarter: 2018Q2

REPORT INFORMATION
  Report Type: Spontaneous
  Country: GB (occurrence: GB)
  Receive Date: 20180528
  Receipt Date: 20180625
  Transmission Date: 20180711
  Serious: Yes (Other)
  Sender: FDA-Public Use
  Company Number: GB-JNJFOC-20180521992

PATIENT
  Age: 29 Month
  Sex: Female

DRUGS (3)
  1. CALPOL [Suspect]
     Active Substance: ACETAMINOPHEN
     Indication: PYREXIA
     Dosage: 120MG/5ML
     Route: 048
     Dates: start: 20180425, end: 20180426
  2. IBUPROFEN. [Suspect]
     Active Substance: IBUPROFEN
     Indication: CONVULSION PROPHYLAXIS
     Dosage: ADDITIONAL INFO: AS PER GUIDANCE
     Route: 048
     Dates: start: 20180427, end: 20180428
  3. CALPOL [Suspect]
     Active Substance: ACETAMINOPHEN
     Indication: CONVULSION PROPHYLAXIS
     Dosage: 120MG/5ML
     Route: 048
     Dates: start: 20180425, end: 20180426

REACTIONS (3)
  - Psychomotor hyperactivity [Recovered/Resolved]
  - Irritability [Recovered/Resolved]
  - Insomnia [Recovered/Resolved]
